FAERS Safety Report 13333747 (Version 1)
Quarter: 2017Q1

REPORT INFORMATION
  Report Type: Spontaneous
  Country: GB (occurrence: GB)
  Receive Date: 20170314
  Receipt Date: 20170314
  Transmission Date: 20170428
  Serious: Yes (Death, Hospitalization, Other)
  Sender: FDA-Public Use
  Company Number: GB-PFIZER INC-2017103634

PATIENT
  Age: 67 Year
  Sex: Male

DRUGS (16)
  1. WARFARIN [Interacting]
     Active Substance: WARFARIN
     Indication: CARDIAC DISORDER
     Dosage: 10 MG, UNK
     Dates: start: 201606
  2. WARFARIN [Interacting]
     Active Substance: WARFARIN
     Dosage: 6 MG, UNK
  3. SPIRONOLACTONE. [Suspect]
     Active Substance: SPIRONOLACTONE
     Indication: FLUID RETENTION
     Dosage: 25 MG, 1X/DAY
     Dates: end: 201611
  4. FUROSEMIDE. [Interacting]
     Active Substance: FUROSEMIDE
     Indication: FLUID RETENTION
     Dosage: 80 MG, 2X/DAY
     Dates: start: 201611
  5. GLYCERYL TRINITRATE [Concomitant]
     Active Substance: NITROGLYCERIN
     Dosage: UNK (SPRAY)
  6. LEVOTHYROXINE. [Concomitant]
     Active Substance: LEVOTHYROXINE
     Indication: HYPOTHYROIDISM
     Dosage: UNK, DAILY
  7. TRAMADOL. [Concomitant]
     Active Substance: TRAMADOL
     Indication: OSTEOARTHRITIS
     Dosage: UNK
     Dates: start: 201511
  8. METOLAZONE. [Interacting]
     Active Substance: METOLAZONE
     Indication: FLUID RETENTION
     Dosage: 25 MG, CYCLIC(3 DAYS/WEEK)
     Dates: end: 201611
  9. WARFARIN [Interacting]
     Active Substance: WARFARIN
     Dosage: 5 MG, UNK
  10. ENALAPRIL [Concomitant]
     Active Substance: ENALAPRIL
     Dosage: UNK, DAILY
  11. WARFARIN [Interacting]
     Active Substance: WARFARIN
     Dosage: 8 MG, UNK
  12. OMEPRAZOLE. [Concomitant]
     Active Substance: OMEPRAZOLE
     Dosage: 10 MG, UNK
  13. OMEPRAZOLE. [Concomitant]
     Active Substance: OMEPRAZOLE
     Dosage: 40 MG
  14. WARFARIN [Interacting]
     Active Substance: WARFARIN
     Dosage: 7 MG, UNK
  15. ISOSORBIDE. [Concomitant]
     Active Substance: ISOSORBIDE
     Dosage: UNK
  16. ALLOPURINOL. [Concomitant]
     Active Substance: ALLOPURINOL
     Indication: GOUT
     Dosage: UNK

REACTIONS (15)
  - Sepsis [Fatal]
  - Orthopnoea [Not Recovered/Not Resolved]
  - Urine output decreased [Unknown]
  - Drug interaction [Unknown]
  - Muscle spasms [Unknown]
  - Rash [Unknown]
  - Respiratory failure [Unknown]
  - Acute kidney injury [Unknown]
  - Asthenia [Unknown]
  - Dyspnoea at rest [Not Recovered/Not Resolved]
  - Nausea [Unknown]
  - Respiratory tract infection [Fatal]
  - Therapeutic response decreased [Unknown]
  - Lethargy [Unknown]
  - Decreased appetite [Unknown]

NARRATIVE: CASE EVENT DATE: 201611
